FAERS Safety Report 15065127 (Version 1)
Quarter: 2018Q2

REPORT INFORMATION
  Report Type: Spontaneous
  Country: US (occurrence: US)
  Receive Date: 20180626
  Receipt Date: 20180626
  Transmission Date: 20180711
  Serious: No
  Sender: FDA-Public Use
  Company Number: US-ASTRAZENECA-2018SE80596

PATIENT
  Age: 859 Month
  Sex: Female
  Weight: 53.1 kg

DRUGS (1)
  1. BEVESPI AEROSPHERE [Suspect]
     Active Substance: FORMOTEROL FUMARATE\GLYCOPYRROLATE
     Indication: CHRONIC OBSTRUCTIVE PULMONARY DISEASE
     Dosage: 2 PUFFS TWICE A DAY
     Route: 055
     Dates: start: 20180611, end: 20180617

REACTIONS (3)
  - Dizziness [Unknown]
  - Drug ineffective [Unknown]
  - Muscle strain [Unknown]

NARRATIVE: CASE EVENT DATE: 201806
